FAERS Safety Report 17054578 (Version 1)
Quarter: 2019Q4

REPORT INFORMATION
  Report Type: Spontaneous
  Country: CA (occurrence: CA)
  Receive Date: 20191120
  Receipt Date: 20191120
  Transmission Date: 20200122
  Serious: Yes (Death, Other)
  Sender: FDA-Public Use
  Company Number: CA-PFIZER INC-2019498453

PATIENT
  Age: 13 Year
  Sex: Female
  Weight: 43 kg

DRUGS (4)
  1. MORPHINE SULFATE. [Suspect]
     Active Substance: MORPHINE SULFATE
     Indication: DRUG ABUSER
     Dosage: UNK
  2. METHYLENEDIOXYAMPHETAMINE [Concomitant]
     Active Substance: TENAMFETAMINE
     Indication: DRUG ABUSER
     Dosage: UNK
     Route: 048
  3. OXYCODONE HYDROCHLORIDE. [Suspect]
     Active Substance: OXYCODONE HYDROCHLORIDE
     Indication: DRUG ABUSER
     Dosage: UNK
  4. AMFETAMINE [Suspect]
     Active Substance: AMPHETAMINE
     Indication: DRUG ABUSER
     Dosage: UNK

REACTIONS (4)
  - Coma [Fatal]
  - Psychomotor skills impaired [Fatal]
  - Accidental overdose [Fatal]
  - Substance abuse [Fatal]
